FAERS Safety Report 13226168 (Version 1)
Quarter: 2017Q1

REPORT INFORMATION
  Report Type: Spontaneous
  Country: US (occurrence: US)
  Receive Date: 20170212
  Receipt Date: 20170212
  Transmission Date: 20170428
  Serious: Yes (Hospitalization)
  Sender: FDA-Public Use
  Company Number: None

PATIENT
  Age: 54 Year
  Sex: Female
  Weight: 81.3 kg

DRUGS (1)
  1. PACLITAXEL. [Suspect]
     Active Substance: PACLITAXEL

REACTIONS (5)
  - Dyspnoea [None]
  - Flushing [None]
  - Paraesthesia [None]
  - Feeling hot [None]
  - Restlessness [None]

NARRATIVE: CASE EVENT DATE: 20170210
